FAERS Safety Report 5167003-3 (Version None)
Quarter: 2006Q4

REPORT INFORMATION
  Report Type: 
  Country: None (occurrence: None)
  Receive Date: 20061207
  Receipt Date: 20060823
  Transmission Date: 20070319
  Serious: Yes (Hospitalization)
  Sender: FDA-Public Use
  Company Number: DE-PURDUE-DEU_2006_0002429

PATIENT
  Age: 80 Year
  Sex: Female

DRUGS (2)
  1. MST 10 MG MUNDIPHARMA [Suspect]
     Indication: BACK PAIN
     Dosage: 10 MG, TID
     Route: 048
  2. BENZODIAZEPINE DERIVATIVES [Concomitant]

REACTIONS (1)
  - HYPOGLYCAEMIA [None]
